FAERS Safety Report 23863668 (Version 1)
Quarter: 2024Q2

REPORT INFORMATION
  Report Type: Spontaneous
  Country: GB (occurrence: GB)
  Receive Date: 20240516
  Receipt Date: 20240516
  Transmission Date: 20240716
  Serious: Yes (Hospitalization, Other)
  Sender: FDA-Public Use
  Company Number: GB-SA-SAC20240514000980

PATIENT
  Age: 26 Year
  Sex: Female

DRUGS (1)
  1. DUPIXENT [Suspect]
     Active Substance: DUPILUMAB
     Indication: Asthma
     Dosage: UNK
     Route: 058
     Dates: start: 2022, end: 202303

REACTIONS (3)
  - Hypoxia [Recovered/Resolved]
  - Asthma [Recovered/Resolved]
  - Peak expiratory flow rate abnormal [Recovered/Resolved]

NARRATIVE: CASE EVENT DATE: 20230201
